FAERS Safety Report 10147314 (Version 1)
Quarter: 2014Q2

REPORT INFORMATION
  Report Type: Spontaneous
  Country: US (occurrence: US)
  Receive Date: 20140501
  Receipt Date: 20140501
  Transmission Date: 20141212
  Serious: Yes (Hospitalization)
  Sender: FDA-Public Use
  Company Number: US-GLENMARK GENERICS (EUROPE) LTD-2014GMK009336

PATIENT
  Age: 57 Year
  Sex: Female

DRUGS (1)
  1. METFORMIN [Suspect]
     Indication: TYPE 2 DIABETES MELLITUS
     Dosage: 500 MG, BID
     Dates: start: 2002

REACTIONS (6)
  - Colitis [Recovered/Resolved]
  - Gastritis [Recovered/Resolved]
  - Diarrhoea [Recovered/Resolved]
  - Blood electrolytes abnormal [Recovered/Resolved]
  - Frequent bowel movements [Recovered/Resolved]
  - Asthenia [Recovered/Resolved]
